FAERS Safety Report 9102724 (Version 11)
Quarter: 2018Q3

REPORT INFORMATION
  Report Type: Spontaneous
  Country: US (occurrence: US)
  Receive Date: 20130219
  Receipt Date: 20180718
  Transmission Date: 20181010
  Serious: Yes (Disabling, Other)
  Sender: FDA-Public Use
  Company Number: US-PFIZER INC-2013061166

PATIENT
  Age: 41 Year
  Sex: Male
  Weight: 87.53 kg

DRUGS (6)
  1. LIPITOR [Suspect]
     Active Substance: ATORVASTATIN CALCIUM
     Dosage: 20 MG, 1X/DAY
     Dates: start: 20080923
  2. TRILIPIX [Concomitant]
     Active Substance: FENOFIBRIC ACID
     Indication: BLOOD TRIGLYCERIDES INCREASED
     Dosage: 135 MG, UNK
  3. LIPITOR [Suspect]
     Active Substance: ATORVASTATIN CALCIUM
     Indication: BLOOD CHOLESTEROL INCREASED
     Dosage: UNK
     Dates: start: 1996, end: 2010
  4. LIPITOR [Suspect]
     Active Substance: ATORVASTATIN CALCIUM
     Dosage: 40 MG, 1X/DAY
     Dates: start: 20081115
  5. LIPITOR [Suspect]
     Active Substance: ATORVASTATIN CALCIUM
     Dosage: 40 MG, 1X/DAY
     Route: 048
     Dates: start: 2002
  6. DURAGESIC [Concomitant]
     Active Substance: FENTANYL
     Indication: PAIN
     Dosage: UNK

REACTIONS (40)
  - Neck pain [Not Recovered/Not Resolved]
  - Spinal cord disorder [Not Recovered/Not Resolved]
  - Spinal column stenosis [Unknown]
  - Pharyngeal oedema [Unknown]
  - Paraesthesia [Recovered/Resolved]
  - Muscle atrophy [Not Recovered/Not Resolved]
  - Peroneal nerve injury [Unknown]
  - Pneumonia [Unknown]
  - Muscle disorder [Unknown]
  - Angiopathy [Unknown]
  - Rhabdomyolysis [Not Recovered/Not Resolved]
  - Musculoskeletal disorder [Not Recovered/Not Resolved]
  - Intervertebral disc protrusion [Unknown]
  - Neck injury [Unknown]
  - Swollen tongue [Unknown]
  - Vertebral osteophyte [Unknown]
  - Myopathy [Unknown]
  - Muscle spasms [Not Recovered/Not Resolved]
  - Peripheral motor neuropathy [Unknown]
  - Dyskinesia [Unknown]
  - Gait disturbance [Unknown]
  - Back pain [Unknown]
  - Intervertebral disc degeneration [Unknown]
  - Weight increased [Unknown]
  - Infection [Unknown]
  - Peroneal nerve palsy [Unknown]
  - Dysgraphia [Unknown]
  - Pain [Not Recovered/Not Resolved]
  - Myalgia [Not Recovered/Not Resolved]
  - Anxiety [Unknown]
  - Pain in extremity [Unknown]
  - Spinal column injury [Not Recovered/Not Resolved]
  - Type 2 diabetes mellitus [Unknown]
  - Neurodegenerative disorder [Unknown]
  - Asthenia [Not Recovered/Not Resolved]
  - Vascular injury [Unknown]
  - Movement disorder [Not Recovered/Not Resolved]
  - Neuropathic muscular atrophy [Unknown]
  - Muscle atrophy [Unknown]
  - Myositis [Unknown]

NARRATIVE: CASE EVENT DATE: 2004
